FAERS Safety Report 10052881 (Version 1)
Quarter: 2014Q2

REPORT INFORMATION
  Report Type: Spontaneous
  Country: AU (occurrence: AU)
  Receive Date: 20140402
  Receipt Date: 20140402
  Transmission Date: 20141212
  Serious: Yes (Other)
  Sender: FDA-Public Use
  Company Number: AU-UCBSA-115798

PATIENT
  Age: 30 Year
  Sex: Male

DRUGS (8)
  1. CIMZIA [Suspect]
     Indication: CROHN^S DISEASE
     Dosage: UNKNOWN DOSE
  2. AZATHIOPRINE [Suspect]
     Dosage: UNKNOWN DOSE
  3. 6-MP [Concomitant]
     Indication: CROHN^S DISEASE
     Dosage: 1.5MG/KG DAILY
  4. SIROLIMUS [Concomitant]
  5. PREDNISONE [Concomitant]
  6. INFLIXIMAB [Concomitant]
  7. METRONIDAZOLE [Concomitant]
  8. CIPROFLOXACIN [Concomitant]

REACTIONS (1)
  - Epstein-Barr virus associated lymphoma [Unknown]
